FAERS Safety Report 9784189 (Version 2)
Quarter: 2014Q1

REPORT INFORMATION
  Report Type: Spontaneous
  Country: IT (occurrence: IT)
  Receive Date: 20131226
  Receipt Date: 20140108
  Transmission Date: 20141002
  Serious: Yes (Hospitalization)
  Sender: FDA-Public Use
  Company Number: IT-PFIZER INC-2013366878

PATIENT
  Age: 53 Year
  Sex: Female

DRUGS (1)
  1. CARDURA [Suspect]
     Indication: HYPERTENSION
     Dosage: 4 MG, DAILY
     Route: 048
     Dates: start: 20131126, end: 20131126

REACTIONS (7)
  - Headache [Recovered/Resolved]
  - Polyneuropathy [Recovered/Resolved]
  - Tremor [Recovered/Resolved]
  - Urinary incontinence [Recovered/Resolved]
  - Medication error [Recovered/Resolved]
  - Anxiety [Unknown]
  - Depression [Unknown]
